FAERS Safety Report 9153089 (Version 1)
Quarter: 2013Q1

REPORT INFORMATION
  Report Type: Spontaneous
  Country: SK (occurrence: None)
  Receive Date: 20130201
  Receipt Date: 20130201
  Transmission Date: 20140127
  Serious: Yes (Life-Threatening, Hospitalization, Other)
  Sender: FDA-Public Use
  Company Number: 2013-00529

PATIENT
  Age: 61 Year
  Sex: Female

DRUGS (6)
  1. HYDROCHLOROTHIAZIDE [Suspect]
     Indication: JOINT SWELLING
  2. QUINAPRIL HCL AND HYDROCHLOROTHIAZIDE [Suspect]
     Indication: BLOOD PRESSURE MANAGEMENT
     Dosage: FIXED COMBINATION: QUINAPRIL 10 MG + HYDROCHLOROTHIAZIDE 12. MG
  3. INDAPAMIDE (INDAPAMIDE) [Concomitant]
  4. AMLODIPINE /00972402/ (AMLODIPINE BESILATE) [Concomitant]
  5. METFORMIN (METFROMIN) [Concomitant]
  6. PERINDOPRIL (PERINDOPRIL) [Concomitant]

REACTIONS (5)
  - Non-cardiogenic pulmonary oedema [None]
  - Hypotension [None]
  - Fibrin D dimer increased [None]
  - Sinus tachycardia [None]
  - Bundle branch block left [None]
